FAERS Safety Report 4872515-3 (Version None)
Quarter: 2005Q4

REPORT INFORMATION
  Report Type: 
  Country: None (occurrence: None)
  Receive Date: 20051230
  Receipt Date: 20051230
  Transmission Date: 20060501
  Serious: Yes (Hospitalization)
  Sender: FDA-Public Use
  Company Number: None

PATIENT
  Age: 81 Year
  Sex: Male
  Weight: 89.6 kg

DRUGS (12)
  1. TERAZOSIN    5MG [Suspect]
     Indication: BENIGN PROSTATIC HYPERPLASIA
     Dosage: 5MG   QHS   PO
     Route: 048
     Dates: start: 19990728, end: 20050912
  2. ACYCLOVIR [Concomitant]
  3. HYDROCODONE 5/ACETAMINOPHEN [Concomitant]
  4. PREDNISONE [Concomitant]
  5. FLUNISOLIDE [Concomitant]
  6. ASPIRIN [Concomitant]
  7. LISINOPRIL [Concomitant]
  8. ADALAT CC [Concomitant]
  9. NITROGLYCERIN [Concomitant]
  10. TRAMADOL HCL [Concomitant]
  11. ISOSORBIDE MONONITRATE [Concomitant]
  12. METOPROLOL TARTRATE [Concomitant]

REACTIONS (5)
  - ASTHENIA [None]
  - DIZZINESS [None]
  - DIZZINESS POSTURAL [None]
  - ORTHOSTATIC HYPOTENSION [None]
  - SYNCOPE [None]
